FAERS Safety Report 6344623-1 (Version None)
Quarter: 2009Q3

REPORT INFORMATION
  Report Type: 
  Country: None (occurrence: None)
  Receive Date: 20090903
  Receipt Date: 20090820
  Transmission Date: 20100115
  Serious: Yes (Hospitalization)
  Sender: FDA-Public Use
  Company Number: 2008AL006265

PATIENT
  Sex: Male

DRUGS (31)
  1. DIGOXIN [Suspect]
     Dosage: 0.125MG, DAILY, PO
     Route: 048
  2. HYDROCODONE BITARTRATE AND ACETAMINOPHEN [Concomitant]
  3. ULTRAM [Concomitant]
  4. PROPOXYPHENE NAPSYLATE AND ACETAMINOPHEN [Concomitant]
  5. CEFADROXIL [Concomitant]
  6. AMIODARONE HCL [Concomitant]
  7. PROTONIX [Concomitant]
  8. METOPROLOL TARTRATE [Concomitant]
  9. PLAVIX [Concomitant]
  10. AMBIEN [Concomitant]
  11. OXYCODONE [Concomitant]
  12. WARFARIN SODIUM [Concomitant]
  13. FLURAZEPAM [Concomitant]
  14. TEMAZEPAM [Concomitant]
  15. LISINOPRIL [Concomitant]
  16. PRAVACHOL [Concomitant]
  17. OMEPRAZOLE [Concomitant]
  18. LEVAQUIN [Concomitant]
  19. ZOCOR [Concomitant]
  20. SINGULAIR [Concomitant]
  21. ACETAMIOPHEN [Concomitant]
  22. ZOCOR [Concomitant]
  23. ZETIA [Concomitant]
  24. AMOX TR-K CV [Concomitant]
  25. ZOLOFT [Concomitant]
  26. LEXAPRO [Concomitant]
  27. TOBRADEX [Concomitant]
  28. CLOPIDOGREL [Concomitant]
  29. PREDNISONE [Concomitant]
  30. AMOXICILLIN [Concomitant]
  31. GENTAK [Concomitant]

REACTIONS (5)
  - ASTHENIA [None]
  - DIZZINESS [None]
  - HEART INJURY [None]
  - MULTIPLE INJURIES [None]
  - NAUSEA [None]
